FAERS Safety Report 17816211 (Version 1)
Quarter: 2020Q2

REPORT INFORMATION
  Report Type: Spontaneous
  Country: US (occurrence: US)
  Receive Date: 20200522
  Receipt Date: 20200522
  Transmission Date: 20200714
  Serious: No
  Sender: FDA-Public Use
  Company Number: None

PATIENT
  Age: 78 Year
  Sex: Female
  Weight: 120 kg

DRUGS (4)
  1. REQUIP 1 MG [Concomitant]
     Dates: start: 20200513, end: 20200522
  2. REMDESIVIR. [Suspect]
     Active Substance: REMDESIVIR
     Indication: COVID-19
     Dosage: ?          OTHER FREQUENCY:ONCE;?
     Route: 041
     Dates: start: 20200518, end: 20200522
  3. LORAZEPAM IV 0.25 MG [Concomitant]
     Dates: start: 20200518, end: 20200518
  4. GABAPENTIN 100 MG [Concomitant]
     Active Substance: GABAPENTIN
     Dates: start: 20200513, end: 20200518

REACTIONS (4)
  - Hallucination, visual [None]
  - Agitation [None]
  - Intensive care unit delirium [None]
  - Anxiety [None]

NARRATIVE: CASE EVENT DATE: 20200518
